FAERS Safety Report 4449996-2 (Version None)
Quarter: 2004Q3

REPORT INFORMATION
  Report Type: 
  Country: None (occurrence: None)
  Receive Date: 20040915
  Receipt Date: 20040910
  Transmission Date: 20050211
  Serious: Yes (Other)
  Sender: FDA-Public Use
  Company Number: PHNU2004DE03203

PATIENT
  Age: 33 Year
  Sex: Male

DRUGS (2)
  1. SANDIMMUNE [Suspect]
     Indication: APLASTIC ANAEMIA
  2. SANDIMMUNE [Suspect]
     Indication: APLASTIC ANAEMIA

REACTIONS (1)
  - CARDIOMYOPATHY [None]
